FAERS Safety Report 13898041 (Version 1)
Quarter: 2017Q3

REPORT INFORMATION
  Report Type: Spontaneous
  Country: US (occurrence: None)
  Receive Date: 20170823
  Receipt Date: 20170823
  Transmission Date: 20171127
  Serious: Yes (Hospitalization)
  Sender: FDA-Public Use
  Company Number: None

PATIENT
  Age: 54 Year
  Sex: Male
  Weight: 72.6 kg

DRUGS (2)
  1. ETOPOSIDE (VP-16) [Suspect]
     Active Substance: ETOPOSIDE
     Dates: end: 20170728
  2. CISPLATIN. [Suspect]
     Active Substance: CISPLATIN
     Dates: end: 20170726

REACTIONS (6)
  - Dyspnoea [None]
  - Burning sensation [None]
  - Abdominal pain upper [None]
  - Febrile neutropenia [None]
  - Platelet count decreased [None]
  - Odynophagia [None]

NARRATIVE: CASE EVENT DATE: 20170806
